FAERS Safety Report 8350992-3 (Version None)
Quarter: 2012Q2

REPORT INFORMATION
  Report Type: 
  Country: None (occurrence: None)
  Receive Date: 20120510
  Receipt Date: 20120426
  Transmission Date: 20120825
  Serious: Yes (Other)
  Sender: FDA-Public Use
  Company Number: CHPA2012US009988

PATIENT
  Sex: Male

DRUGS (2)
  1. BENEFIBER W/ WHEAT DEXTRIN [Suspect]
     Indication: CONSTIPATION
     Dosage: 2 TSP, PRN
     Route: 048
     Dates: start: 20110101
  2. ANTIHYPERTENSIVES [Concomitant]
     Indication: HYPERTENSION
     Dosage: UNK

REACTIONS (5)
  - OESOPHAGEAL ULCER [None]
  - HELICOBACTER INFECTION [None]
  - ABDOMINAL PAIN UPPER [None]
  - DRUG INEFFECTIVE FOR UNAPPROVED INDICATION [None]
  - ULCER [None]
